FAERS Safety Report 13651920 (Version 1)
Quarter: 2017Q2

REPORT INFORMATION
  Report Type: Spontaneous
  Country: US (occurrence: US)
  Receive Date: 20170614
  Receipt Date: 20170614
  Transmission Date: 20170830
  Serious: No
  Sender: FDA-Public Use
  Company Number: None

PATIENT

DRUGS (1)
  1. DOXY 100 [Suspect]
     Active Substance: DOXYCYCLINE HYCLATE
     Route: 042
     Dates: start: 20170614, end: 20170614

REACTIONS (3)
  - Treatment failure [None]
  - Underdose [None]
  - Packaging design issue [None]

NARRATIVE: CASE EVENT DATE: 20170614
